FAERS Safety Report 9380165 (Version 2)
Quarter: 2013Q4

REPORT INFORMATION
  Report Type: Spontaneous
  Country: GB (occurrence: GB)
  Receive Date: 20130702
  Receipt Date: 20131029
  Transmission Date: 20140711
  Serious: Yes (Other)
  Sender: FDA-Public Use
  Company Number: GB-UCBSA-090028

PATIENT
  Age: 32 Year
  Sex: Female
  Weight: 71.66 kg

DRUGS (3)
  1. KEPPRA [Suspect]
     Indication: EPILEPSY
     Dosage: DOSE: 1000 MG
     Route: 048
     Dates: start: 20130516, end: 20130523
  2. CERAZETTE [Concomitant]
  3. CLOBAZAM [Concomitant]

REACTIONS (3)
  - Influenza like illness [Recovered/Resolved]
  - Drug ineffective [Unknown]
  - Product substitution issue [Unknown]
